FAERS Safety Report 24178811 (Version 2)
Quarter: 2024Q3

REPORT INFORMATION
  Report Type: Spontaneous
  Country: BR (occurrence: BR)
  Receive Date: 20240806
  Receipt Date: 20240815
  Transmission Date: 20241017
  Serious: Yes (Other)
  Sender: PFIZER
  Company Number: BR-PFIZER INC-PV202400099333

PATIENT
  Age: 58 Year
  Sex: Female

DRUGS (11)
  1. TALIGLUCERASE ALFA [Suspect]
     Active Substance: TALIGLUCERASE ALFA
     Indication: Gaucher^s disease
     Dosage: 22IU/KG EVERY 15 DAYS
     Route: 042
     Dates: start: 20210308
  2. TALIGLUCERASE ALFA [Suspect]
     Active Substance: TALIGLUCERASE ALFA
     Dosage: 22IU/KG EVERY 15 DAYS
     Route: 042
     Dates: start: 20210803
  3. ZOLEDRONIC ACID [Concomitant]
     Active Substance: ZOLEDRONIC ACID
     Dosage: ONCE A YEAR
  4. OMEPRAZOLE [Concomitant]
     Active Substance: OMEPRAZOLE
     Dosage: UNK
  5. ALENDRONATE [Concomitant]
     Active Substance: ALENDRONATE SODIUM
     Dosage: UNK
  6. CHOLECALCIFEROL [Concomitant]
     Active Substance: CHOLECALCIFEROL
     Dosage: UNK
  7. CALCIUM [Concomitant]
     Active Substance: CALCIUM
     Dosage: UNK
  8. CLOBAZAM [Concomitant]
     Active Substance: CLOBAZAM
     Dosage: UNK
  9. PREGABALIN [Concomitant]
     Active Substance: PREGABALIN
     Indication: Pain
     Dosage: UNK
  10. ESCITALOPRAM [Concomitant]
     Active Substance: ESCITALOPRAM OXALATE
     Dosage: UNK
  11. LEVETIRACETAM [Concomitant]
     Active Substance: LEVETIRACETAM
     Dosage: UNK

REACTIONS (11)
  - Limb deformity [Unknown]
  - Limb asymmetry [Unknown]
  - Grip strength decreased [Unknown]
  - Benign bone neoplasm [Unknown]
  - Spinal disorder [Unknown]
  - Gastrooesophageal reflux disease [Unknown]
  - Oesophagitis [Unknown]
  - Strabismus [Unknown]
  - Arthralgia [Unknown]
  - Hypertension [Unknown]
  - Vitamin D deficiency [Unknown]

NARRATIVE: CASE EVENT DATE: 20230101
